FAERS Safety Report 4684467-X (Version None)
Quarter: 2005Q2

REPORT INFORMATION
  Report Type: 
  Country: None (occurrence: None)
  Receive Date: 20050531
  Receipt Date: 20050104
  Transmission Date: 20051028
  Serious: Yes (Hospitalization)
  Sender: FDA-Public Use
  Company Number: USA040978273

PATIENT
  Sex: Female
  Weight: 91 kg

DRUGS (5)
  1. ZYPREXA [Suspect]
     Indication: PSYCHOTIC DISORDER
     Dosage: 15 MG DAY
     Route: 048
  2. ZOLOFT [Concomitant]
  3. ADVAIR DISKUS 100/50 [Concomitant]
  4. NEURONTIN [Concomitant]
  5. ATIVAN [Concomitant]

REACTIONS (2)
  - BLOOD GLUCOSE INCREASED [None]
  - WEIGHT INCREASED [None]
